FAERS Safety Report 17276916 (Version 1)
Quarter: 2020Q1

REPORT INFORMATION
  Report Type: Spontaneous
  Country: ES (occurrence: ES)
  Receive Date: 20200116
  Receipt Date: 20200116
  Transmission Date: 20200409
  Serious: Yes (Life-Threatening)
  Sender: FDA-Public Use
  Company Number: ES-TEVA-2020-ES-1167638

PATIENT
  Age: 73 Year
  Sex: Female

DRUGS (5)
  1. RIVAROXABAN (8281A) [Concomitant]
     Active Substance: RIVAROXABAN
  2. BISOPROLOL (2328A) [Suspect]
     Active Substance: BISOPROLOL
     Route: 065
     Dates: start: 20190308, end: 20190813
  3. PREGABALINA (3897A) [Concomitant]
     Active Substance: PREGABALIN
  4. APOCARD [Concomitant]
     Active Substance: FLECAINIDE ACETATE
  5. FUROSEMIDA (1615A) [Interacting]
     Active Substance: FUROSEMIDE
     Dates: start: 20180917, end: 20190813

REACTIONS (4)
  - Drug interaction [Unknown]
  - Syncope [Recovered/Resolved]
  - Bradycardia [Recovered/Resolved]
  - Dizziness [Recovered/Resolved]

NARRATIVE: CASE EVENT DATE: 20190813
